FAERS Safety Report 6379245-X (Version None)
Quarter: 2009Q3

REPORT INFORMATION
  Report Type: 
  Country: None (occurrence: None)
  Receive Date: 20090923
  Receipt Date: 20090910
  Transmission Date: 20100115
  Serious: Yes (Hospitalization)
  Sender: FDA-Public Use
  Company Number: 2009AL003726

PATIENT
  Age: 89 Year
  Sex: Female

DRUGS (35)
  1. DIGOXIN [Suspect]
     Dosage: 0.25MG, DAILY, PO
     Route: 048
  2. DIGOXIN [Suspect]
     Dosage: 0.125MG, DAILY, PO
     Route: 048
     Dates: start: 20030101, end: 20090714
  3. SPIRIVA [Concomitant]
  4. PRAVACHOL [Concomitant]
  5. ASPIRIN [Concomitant]
  6. CIPRO [Concomitant]
  7. FEMARA [Concomitant]
  8. ARCURI [Concomitant]
  9. LUTEIN [Concomitant]
  10. NITROGLYCERIN [Concomitant]
  11. STOOL SOFTENER [Concomitant]
  12. VASOTEC [Concomitant]
  13. VIOXX [Concomitant]
  14. PAXIL [Concomitant]
  15. NITROSTAT [Concomitant]
  16. MAGNESIUM OXIDE [Concomitant]
  17. XANAX [Concomitant]
  18. LOPRESSOR [Concomitant]
  19. AVELOX [Concomitant]
  20. ENALAPRIL MALEATE [Concomitant]
  21. CLOTRIM/BETA DIPROP [Concomitant]
  22. BENZONATATE [Concomitant]
  23. ZITHROMAX [Concomitant]
  24. NYSTATIN [Concomitant]
  25. FLUCONAZOLE [Concomitant]
  26. AMOXIL [Concomitant]
  27. DIFLUCAN [Concomitant]
  28. NIZORAL [Concomitant]
  29. AMBIEN [Concomitant]
  30. TRIAMTERENE AND HYDROCHLOROTHIAZIDE [Concomitant]
  31. ALPRAZOLAM [Concomitant]
  32. ETHEDENT [Concomitant]
  33. BIAXIN [Concomitant]
  34. SUCRAALFATE [Concomitant]
  35. PREDNISONE [Concomitant]

REACTIONS (12)
  - ASTHENIA [None]
  - BLOOD PRESSURE SYSTOLIC DECREASED [None]
  - BRONCHIECTASIS [None]
  - COUGH [None]
  - DYSPNOEA [None]
  - LETHARGY [None]
  - METASTASES TO LIVER [None]
  - NAUSEA [None]
  - PLEURAL FIBROSIS [None]
  - SYNCOPE [None]
  - URINARY TRACT INFECTION [None]
  - VOMITING [None]
